FAERS Safety Report 24617875 (Version 2)
Quarter: 2024Q4

REPORT INFORMATION
  Report Type: Report from Study
  Country: CN (occurrence: CN)
  Receive Date: 20241114
  Receipt Date: 20241114
  Transmission Date: 20250115
  Serious: Yes (Other)
  Sender: ALEXION PHARMACEUTICALS
  Company Number: CN-ASTRAZENECA-202410GLO023076CN

PATIENT

DRUGS (16)
  1. SELUMETINIB [Suspect]
     Active Substance: SELUMETINIB
     Indication: Neurofibromatosis
     Dosage: 20 MILLIGRAM, QD
  2. SELUMETINIB [Suspect]
     Active Substance: SELUMETINIB
     Dosage: 20 MILLIGRAM, QD
  3. SELUMETINIB [Suspect]
     Active Substance: SELUMETINIB
     Dosage: 20 MILLIGRAM, QD
  4. SELUMETINIB [Suspect]
     Active Substance: SELUMETINIB
     Dosage: 20 MILLIGRAM, QD
  5. SELUMETINIB [Suspect]
     Active Substance: SELUMETINIB
     Dosage: 30 MILLIGRAM, QD
  6. SELUMETINIB [Suspect]
     Active Substance: SELUMETINIB
     Dosage: 30 MILLIGRAM, QD
  7. SELUMETINIB [Suspect]
     Active Substance: SELUMETINIB
     Dosage: 30 MILLIGRAM, QD
  8. SELUMETINIB [Suspect]
     Active Substance: SELUMETINIB
     Dosage: 30 MILLIGRAM, QD
  9. SELUMETINIB [Suspect]
     Active Substance: SELUMETINIB
     Dosage: 25 MILLIGRAM, BID
  10. SELUMETINIB [Suspect]
     Active Substance: SELUMETINIB
     Dosage: 25 MILLIGRAM, BID
  11. SELUMETINIB [Suspect]
     Active Substance: SELUMETINIB
     Dosage: 25 MILLIGRAM, BID
  12. SELUMETINIB [Suspect]
     Active Substance: SELUMETINIB
     Dosage: 25 MILLIGRAM, BID
  13. TRIAMCINOLONE ACETONIDE [Concomitant]
     Active Substance: TRIAMCINOLONE ACETONIDE
     Indication: Adverse event
     Dosage: UNK GRAM, BID
  14. TRIAMCINOLONE ACETONIDE [Concomitant]
     Active Substance: TRIAMCINOLONE ACETONIDE
     Dosage: UNK GRAM, BID
  15. DESONIDE [Concomitant]
     Active Substance: DESONIDE
     Indication: Adverse event
     Dosage: UNK GRAM, BID
  16. DESONIDE [Concomitant]
     Active Substance: DESONIDE
     Dosage: UNK GRAM, BID

REACTIONS (1)
  - Coeliac disease [Recovered/Resolved]
